FAERS Safety Report 7954348-4 (Version None)
Quarter: 2011Q4

REPORT INFORMATION
  Report Type: 
  Country: None (occurrence: None)
  Receive Date: 20111202
  Receipt Date: 20111122
  Transmission Date: 20120403
  Serious: Yes (Other)
  Sender: FDA-Public Use
  Company Number: CA-JNJFOC-20111110910

PATIENT
  Sex: Male
  Weight: 97 kg

DRUGS (12)
  1. COLCHICINE [Concomitant]
  2. ASPIRIN [Concomitant]
  3. VITAMIN D [Concomitant]
  4. LATANOPROST [Concomitant]
  5. METHOTREXATE [Concomitant]
     Route: 058
  6. CALCIUM [Concomitant]
  7. RAMIPRIL [Concomitant]
  8. PREDNISONE TAB [Concomitant]
  9. CITALOPRAM [Concomitant]
  10. RABEPRAZOLE SODIUM [Concomitant]
  11. ZOPICLONE [Concomitant]
  12. REMICADE [Suspect]
     Indication: BEHCET'S SYNDROME
     Route: 042
     Dates: start: 20110223

REACTIONS (1)
  - ENCEPHALITIS [None]
